FAERS Safety Report 8317670-8 (Version None)
Quarter: 2012Q2

REPORT INFORMATION
  Report Type: 
  Country: None (occurrence: None)
  Receive Date: 20120427
  Receipt Date: 20110928
  Transmission Date: 20120825
  Serious: No
  Sender: FDA-Public Use
  Company Number: US-GLAXOSMITHKLINE-A0907380A

PATIENT
  Sex: Female

DRUGS (7)
  1. AMERGE [Suspect]
     Indication: MIGRAINE
     Dosage: 2.5MG AS REQUIRED
     Route: 048
  2. TEMAZEPAM [Concomitant]
  3. AMERGE [Suspect]
     Route: 048
     Dates: start: 19980201
  4. SYNTHROID [Concomitant]
  5. IMITREX [Suspect]
     Indication: MIGRAINE
     Route: 058
  6. VITAMIN TAB [Concomitant]
  7. AMBIEN [Concomitant]

REACTIONS (2)
  - THERAPEUTIC RESPONSE DECREASED [None]
  - RASH [None]
